FAERS Safety Report 5089451-2 (Version None)
Quarter: 2006Q3

REPORT INFORMATION
  Report Type: 
  Country: None (occurrence: None)
  Receive Date: 20060822
  Receipt Date: 20060817
  Transmission Date: 20061208
  Serious: Yes (Disabling)
  Sender: FDA-Public Use
  Company Number: 2006-04-2279

PATIENT
  Age: 55 Year
  Sex: Male
  Weight: 79.8331 kg

DRUGS (2)
  1. PEG-INTRON [Suspect]
     Indication: HEPATITIS C
     Dosage: 120 MCG SUBCUTANEOUS
     Route: 058
     Dates: start: 20050902, end: 20060323
  2. RIBAVIRIN [Suspect]
     Indication: HEPATITIS C
     Dosage: 1000 MG DAILY ORAL
     Route: 048
     Dates: start: 20050902, end: 20060323

REACTIONS (3)
  - BLINDNESS UNILATERAL [None]
  - OPTIC NEUROPATHY [None]
  - PAPILLOEDEMA [None]
